FAERS Safety Report 4338423-1 (Version None)
Quarter: 2004Q2

REPORT INFORMATION
  Report Type: 
  Country: None (occurrence: None)
  Receive Date: 20040409
  Receipt Date: 20040401
  Transmission Date: 20050107
  Serious: Yes (Death)
  Sender: FDA-Public Use
  Company Number: 2004-04-0169

PATIENT
  Age: 66 Year
  Sex: Male

DRUGS (1)
  1. TEMODAR [Suspect]
     Indication: MYELOID LEUKAEMIA
     Dosage: ORAL
     Route: 048

REACTIONS (1)
  - DEATH [None]
